FAERS Safety Report 5645653-5 (Version None)
Quarter: 2008Q1

REPORT INFORMATION
  Report Type: 
  Country: None (occurrence: None)
  Receive Date: 20080229
  Receipt Date: 20080220
  Transmission Date: 20080703
  Serious: Yes (Hospitalization)
  Sender: FDA-Public Use
  Company Number: IE-AMGEN-UK253746

PATIENT
  Sex: Male

DRUGS (9)
  1. PANITUMUMAB [Suspect]
     Indication: COLORECTAL CANCER
     Route: 042
     Dates: start: 20070822, end: 20071114
  2. FLUOROURACIL [Suspect]
     Route: 065
     Dates: start: 20070822, end: 20071114
  3. LEUCOVORIN CALCIUM [Suspect]
     Route: 065
     Dates: start: 20070822, end: 20071114
  4. IRINOTECAN [Suspect]
     Route: 065
     Dates: start: 20070822, end: 20071114
  5. TIOTROPIUM BROMIDE [Concomitant]
     Route: 055
     Dates: start: 20030625
  6. SERETIDE [Concomitant]
     Route: 055
     Dates: start: 20030625
  7. CIPRAMIL [Concomitant]
     Route: 048
     Dates: start: 20070901
  8. AMLODIPINE [Concomitant]
     Route: 048
     Dates: start: 20070802
  9. NEXIUM [Concomitant]
     Route: 048
     Dates: start: 20061001

REACTIONS (1)
  - INTESTINAL OBSTRUCTION [None]
